FAERS Safety Report 8262916-8 (Version None)
Quarter: 2012Q2

REPORT INFORMATION
  Report Type: 
  Country: None (occurrence: None)
  Receive Date: 20120405
  Receipt Date: 20120322
  Transmission Date: 20120825
  Serious: Yes (Death)
  Sender: FDA-Public Use
  Company Number: JP-GLAXOSMITHKLINE-B0790885A

PATIENT
  Age: 70 Year
  Sex: Male

DRUGS (5)
  1. LAMICTAL [Suspect]
     Route: 048
     Dates: start: 20111228, end: 20120213
  2. TEMODAL [Suspect]
     Indication: BRAIN NEOPLASM
     Route: 065
  3. KEPPRA [Suspect]
     Indication: CONVULSION
     Dosage: 1000MG PER DAY
     Route: 048
     Dates: start: 20111207, end: 20111218
  4. LAMICTAL [Suspect]
     Indication: EPILEPSY
     Dosage: 50MG PER DAY
     Route: 048
     Dates: start: 20111218, end: 20111227
  5. DEPAKENE [Suspect]
     Indication: PRODUCT USED FOR UNKNOWN INDICATION
     Route: 048
     Dates: start: 20111207, end: 20111213

REACTIONS (2)
  - DEATH [None]
  - PANCYTOPENIA [None]
